FAERS Safety Report 4368129-4 (Version None)
Quarter: 2004Q2

REPORT INFORMATION
  Report Type: 
  Country: None (occurrence: None)
  Receive Date: 20040602
  Receipt Date: 20040524
  Transmission Date: 20050107
  Serious: Yes (Disabling)
  Sender: FDA-Public Use
  Company Number: US-MERCK-0405USA01789

PATIENT
  Age: 59 Year
  Sex: Female

DRUGS (7)
  1. VICODIN [Concomitant]
     Route: 065
  2. ARAVA [Concomitant]
     Route: 065
  3. PREDNISONE [Concomitant]
     Indication: JAW INFLAMMATION
     Route: 065
     Dates: end: 20040201
  4. VIOXX [Suspect]
     Indication: PAIN
     Route: 048
     Dates: end: 20040201
  5. VIOXX [Suspect]
     Route: 048
     Dates: start: 20030101
  6. VIOXX [Suspect]
     Indication: INFLAMMATION
     Route: 048
     Dates: end: 20040201
  7. VIOXX [Suspect]
     Route: 048
     Dates: start: 20030101

REACTIONS (4)
  - FEELING ABNORMAL [None]
  - JOINT SWELLING [None]
  - NAUSEA [None]
  - STOMACH DISCOMFORT [None]
